FAERS Safety Report 9284526 (Version 1)
Quarter: 2013Q2

REPORT INFORMATION
  Report Type: Spontaneous
  Country: US (occurrence: US)
  Receive Date: 20130510
  Receipt Date: 20130510
  Transmission Date: 20140414
  Serious: Yes (Hospitalization, Other)
  Sender: FDA-Public Use
  Company Number: US-ALLERGAN-0805656US

PATIENT
  Sex: Female

DRUGS (1)
  1. BOTOX? [Suspect]
     Indication: HYPERHIDROSIS
     Dosage: 100 UNITS, SINGLE
     Route: 030
     Dates: start: 20080428, end: 20080428

REACTIONS (3)
  - Placenta praevia [Recovered/Resolved]
  - Varicocele utero-ovarian [Unknown]
  - Pregnancy [Recovered/Resolved]
